FAERS Safety Report 8170627-2 (Version None)
Quarter: 2012Q1

REPORT INFORMATION
  Report Type: 
  Country: None (occurrence: None)
  Receive Date: 20120228
  Receipt Date: 20120217
  Transmission Date: 20120608
  Serious: Yes (Death, Hospitalization)
  Sender: FDA-Public Use
  Company Number: IT-BAXTER-2012BH003869

PATIENT
  Age: 66 Year
  Sex: Male

DRUGS (10)
  1. MESNA [Concomitant]
     Indication: LEIOMYOSARCOMA
     Route: 042
     Dates: start: 20110922, end: 20110924
  2. EPIRUBICIN HYDROCHLORIDE [Suspect]
     Indication: LEIOMYOSARCOMA
     Route: 042
     Dates: start: 20110922, end: 20110922
  3. IFOSFAMIDE [Suspect]
     Indication: LEIOMYOSARCOMA
     Route: 042
     Dates: start: 20110922, end: 20110924
  4. ACETAMINOPHEN [Concomitant]
     Indication: PRODUCT USED FOR UNKNOWN INDICATION
     Route: 048
  5. ESOMEPRAZOLE SODIUM [Concomitant]
     Indication: PRODUCT USED FOR UNKNOWN INDICATION
     Route: 048
  6. ALLOPURINOL [Concomitant]
     Indication: PRODUCT USED FOR UNKNOWN INDICATION
     Route: 048
  7. DISSENTEN [Concomitant]
     Indication: PRODUCT USED FOR UNKNOWN INDICATION
     Route: 065
  8. ROXICODONE [Concomitant]
     Indication: PRODUCT USED FOR UNKNOWN INDICATION
     Route: 048
  9. CALCIUM CARBONATE [Concomitant]
     Indication: PRODUCT USED FOR UNKNOWN INDICATION
     Route: 065
  10. SODIUM BICARBONATE [Concomitant]
     Indication: PRODUCT USED FOR UNKNOWN INDICATION
     Route: 065

REACTIONS (2)
  - FEBRILE NEUTROPENIA [None]
  - SEPTIC SHOCK [None]
